FAERS Safety Report 7459257-5 (Version None)
Quarter: 2011Q2

REPORT INFORMATION
  Report Type: 
  Country: None (occurrence: None)
  Receive Date: 20110505
  Receipt Date: 20110421
  Transmission Date: 20111010
  Serious: Yes (Disabling)
  Sender: FDA-Public Use
  Company Number: TR-JNJFOC-20110310431

PATIENT
  Sex: Male
  Weight: 70 kg

DRUGS (2)
  1. INFLIXIMAB, RECOMBINANT [Suspect]
     Indication: ANKYLOSING SPONDYLITIS
     Dosage: 2ND INFUSION  DOSE REGIMEN WAS REPORTED AS 0, 2, 6 WEEKS AND LATER ONCE FOR PER 8 WEEKS
     Route: 042
  2. INFLIXIMAB, RECOMBINANT [Suspect]
     Dosage: 1ST INFUSION  DOSE REGIMEN WAS REPORTED AS 0, 2, 6 WEEKS AND LATER ONCE FOR PER 8 WEEKS
     Route: 042

REACTIONS (2)
  - MUSCULAR WEAKNESS [None]
  - AREFLEXIA [None]
